FAERS Safety Report 18381936 (Version 1)
Quarter: 2020Q4

REPORT INFORMATION
  Report Type: Spontaneous
  Country: US (occurrence: US)
  Receive Date: 20201013
  Receipt Date: 20201013
  Transmission Date: 20210114
  Serious: Yes (Other)
  Sender: FDA-Public Use
  Company Number: None

PATIENT
  Sex: Female
  Weight: 57.6 kg

DRUGS (1)
  1. CEPHALEXIN. [Suspect]
     Active Substance: CEPHALEXIN
     Indication: INFECTION
     Dosage: ?          QUANTITY:1 CAPSULE(S);?

REACTIONS (5)
  - Vomiting [None]
  - Pruritus [None]
  - Ocular hyperaemia [None]
  - Diarrhoea [None]
  - Vertigo [None]
